FAERS Safety Report 5977976-4 (Version None)
Quarter: 2008Q4

REPORT INFORMATION
  Report Type: 
  Country: None (occurrence: None)
  Receive Date: 20081203
  Receipt Date: 20081112
  Transmission Date: 20090506
  Serious: No
  Sender: FDA-Public Use
  Company Number: US-B.I. PHARMACEUTICALS,INC./RIDGEFIELD-2008-BP-17115BP

PATIENT
  Sex: Male

DRUGS (5)
  1. ZANTAC 75 [Suspect]
     Indication: DYSPEPSIA
     Dosage: 75MG
     Route: 048
     Dates: start: 20081111
  2. SINGULAIR [Concomitant]
     Indication: ASTHMA
     Dosage: 10MG
     Route: 048
     Dates: start: 20070101
  3. XOPENEX [Concomitant]
     Indication: ASTHMA
     Route: 055
     Dates: start: 20010101
  4. ADVAIR HFA [Concomitant]
     Indication: ASTHMA
     Route: 055
     Dates: start: 20060101
  5. PREDNISONE TAB [Concomitant]
     Indication: ASTHMA
     Route: 048

REACTIONS (1)
  - YAWNING [None]
